FAERS Safety Report 6184168-5 (Version None)
Quarter: 2009Q2

REPORT INFORMATION
  Report Type: 
  Country: None (occurrence: None)
  Receive Date: 20090506
  Receipt Date: 20090506
  Transmission Date: 20091009
  Serious: Yes (Other)
  Sender: FDA-Public Use
  Company Number: None

PATIENT
  Age: 42 Year
  Sex: Female
  Weight: 117.9352 kg

DRUGS (1)
  1. LEVAQUIN [Suspect]
     Indication: PANCREATITIS
     Dosage: 500 MG DAILY IV
     Route: 042
     Dates: start: 20090421, end: 20090422

REACTIONS (7)
  - ERYTHEMA [None]
  - INFUSION RELATED REACTION [None]
  - INFUSION SITE ERYTHEMA [None]
  - INFUSION SITE OEDEMA [None]
  - INFUSION SITE PRURITUS [None]
  - OEDEMA PERIPHERAL [None]
  - PRURITUS [None]
